FAERS Safety Report 19666754 (Version 2)
Quarter: 2021Q3

REPORT INFORMATION
  Report Type: Spontaneous
  Country: US (occurrence: US)
  Receive Date: 20210806
  Receipt Date: 20210913
  Transmission Date: 20211014
  Serious: Yes (Other)
  Sender: FDA-Public Use
  Company Number: US-NOVOPROD-834489

PATIENT
  Sex: Female

DRUGS (6)
  1. TRESIBA [Suspect]
     Active Substance: INSULIN DEGLUDEC
     Indication: TYPE 2 DIABETES MELLITUS
     Dosage: 70 UNITS
     Route: 065
     Dates: start: 2010
  2. TRESIBA [Suspect]
     Active Substance: INSULIN DEGLUDEC
     Indication: TYPE 2 DIABETES MELLITUS
     Dosage: 70 UNITS
     Route: 065
     Dates: start: 2010
  3. TRESIBA [Suspect]
     Active Substance: INSULIN DEGLUDEC
     Indication: TYPE 2 DIABETES MELLITUS
     Dosage: 70 UNITS
     Route: 065
     Dates: start: 2010
  4. TRESIBA [Suspect]
     Active Substance: INSULIN DEGLUDEC
     Indication: TYPE 2 DIABETES MELLITUS
     Dosage: 70 UNITS
     Route: 065
     Dates: start: 2010
  5. TRESIBA [Suspect]
     Active Substance: INSULIN DEGLUDEC
     Indication: TYPE 2 DIABETES MELLITUS
     Dosage: 70 UNITS
     Route: 065
     Dates: start: 2010
  6. TRESIBA [Suspect]
     Active Substance: INSULIN DEGLUDEC
     Indication: TYPE 2 DIABETES MELLITUS
     Dosage: 70 UNITS
     Route: 065
     Dates: start: 2010

REACTIONS (4)
  - Device failure [Unknown]
  - Device issue [Unknown]
  - Blood glucose increased [Recovered/Resolved]
  - Drug dose omission by device [Unknown]

NARRATIVE: CASE EVENT DATE: 202107
